FAERS Safety Report 17810417 (Version 1)
Quarter: 2020Q2

REPORT INFORMATION
  Report Type: Spontaneous
  Country: FR (occurrence: FR)
  Receive Date: 20200521
  Receipt Date: 20200521
  Transmission Date: 20200714
  Serious: Yes (Hospitalization)
  Sender: FDA-Public Use
  Company Number: FR-ACCORD-182383

PATIENT
  Age: 12 Year
  Sex: Male
  Weight: 44 kg

DRUGS (13)
  1. OMEPRAZOLE. [Concomitant]
     Active Substance: OMEPRAZOLE
     Route: 048
  2. GABAPENTIN. [Concomitant]
     Active Substance: GABAPENTIN
     Route: 048
  3. DOXORUBICIN [Suspect]
     Active Substance: DOXORUBICIN
     Indication: EWING^S SARCOMA
     Dosage: 2 TREATMENT
     Route: 042
     Dates: start: 20200107, end: 20200210
  4. IFOSFAMIDE. [Suspect]
     Active Substance: IFOSFAMIDE
     Indication: PRODUCT USED FOR UNKNOWN INDICATION
     Dosage: 2 TREATMENT
     Route: 042
     Dates: start: 20200121, end: 20200228
  5. LARGACTIL [Concomitant]
     Active Substance: CHLORPROMAZINE
     Dosage: STRENGTH: 25 MG / 5 ML
     Route: 042
  6. MESNA. [Concomitant]
     Active Substance: MESNA
     Dosage: STRENGTH: 100 MG / ML
     Route: 042
  7. ETOPOSIDE. [Suspect]
     Active Substance: ETOPOSIDE
     Indication: EWING^S SARCOMA
     Dosage: 2 TREATMENT
     Route: 042
     Dates: start: 20200121, end: 20200228
  8. CYCLOPHOSPHAMIDE/CYCLOPHOSPHAMIDE MONOHYDRATE [Suspect]
     Active Substance: CYCLOPHOSPHAMIDE
     Indication: EWING^S SARCOMA
     Dosage: 2 TREATMENT
     Route: 042
     Dates: start: 20200107, end: 20200210
  9. VINCRISTINE [Suspect]
     Active Substance: VINCRISTINE
     Indication: EWING^S SARCOMA
     Dosage: 2 TREATMENT
     Route: 065
     Dates: start: 20200107, end: 20200110
  10. BACTRIM [Concomitant]
     Active Substance: SULFAMETHOXAZOLE\TRIMETHOPRIM
     Route: 048
  11. EMEND [Concomitant]
     Active Substance: APREPITANT
     Dosage: STRENGTH: 125 MG,
     Route: 048
  12. ONDANSETRON [Concomitant]
     Active Substance: ONDANSETRON
     Route: 048
  13. EMEND [Concomitant]
     Active Substance: APREPITANT
     Dosage: STRENGTH: 80 MG
     Route: 048

REACTIONS (2)
  - Venoocclusive disease [Recovering/Resolving]
  - Off label use [Unknown]

NARRATIVE: CASE EVENT DATE: 20200319
